FAERS Safety Report 12368798 (Version 1)
Quarter: 2016Q2

REPORT INFORMATION
  Report Type: Spontaneous
  Country: ES (occurrence: ES)
  Receive Date: 20160513
  Receipt Date: 20160513
  Transmission Date: 20160815
  Serious: Yes (Hospitalization)
  Sender: FDA-Public Use
  Company Number: ES-ELI_LILLY_AND_COMPANY-ES201605002439

PATIENT
  Age: 57 Year
  Sex: Male

DRUGS (2)
  1. CISPLATINE [Suspect]
     Active Substance: CISPLATIN
     Indication: LUNG NEOPLASM MALIGNANT
     Dosage: 150 MG, CYCLICAL
     Route: 042
     Dates: start: 20151223, end: 20160316
  2. ALIMTA [Suspect]
     Active Substance: PEMETREXED DISODIUM
     Indication: LUNG NEOPLASM MALIGNANT
     Dosage: 1000 MG, CYCLICAL
     Route: 042
     Dates: start: 20151223, end: 20160316

REACTIONS (8)
  - Febrile neutropenia [Recovered/Resolved]
  - Pseudo-Bartter syndrome [Recovered/Resolved]
  - Pancytopenia [Recovered/Resolved]
  - Dizziness [Unknown]
  - Balance disorder [Unknown]
  - Tinnitus [Unknown]
  - Acute kidney injury [Recovered/Resolved]
  - General physical health deterioration [Unknown]

NARRATIVE: CASE EVENT DATE: 20160324
